FAERS Safety Report 14226904 (Version 3)
Quarter: 2018Q1

REPORT INFORMATION
  Report Type: Spontaneous
  Country: IT (occurrence: IT)
  Receive Date: 20171127
  Receipt Date: 20180306
  Transmission Date: 20180508
  Serious: Yes (Hospitalization)
  Sender: FDA-Public Use
  Company Number: IT-JNJFOC-20171120833

PATIENT
  Age: 22 Year
  Sex: Female

DRUGS (1)
  1. RISPERIDONE. [Suspect]
     Active Substance: RISPERIDONE
     Indication: DRUG ABUSE
     Dosage: INTAKE OF 6 TABLETS (6 DF) OF 4 MG
     Route: 048
     Dates: start: 20170821, end: 20170821

REACTIONS (4)
  - Intentional overdose [Unknown]
  - Tachycardia [Recovering/Resolving]
  - Muscle spasms [Recovering/Resolving]
  - Hypertension [Recovering/Resolving]

NARRATIVE: CASE EVENT DATE: 20170821
